FAERS Safety Report 7291149-7 (Version None)
Quarter: 2011Q1

REPORT INFORMATION
  Report Type: 
  Country: None (occurrence: None)
  Receive Date: 20110214
  Receipt Date: 20110204
  Transmission Date: 20110831
  Serious: Yes (Hospitalization)
  Sender: FDA-Public Use
  Company Number: DE-ELI_LILLY_AND_COMPANY-DE201102001766

PATIENT
  Age: 81 Year
  Sex: Female

DRUGS (3)
  1. ANALGESICS [Concomitant]
     Indication: BACK PAIN
  2. ANTIHYPERTENSIVES [Concomitant]
  3. FORTEO [Suspect]
     Indication: OSTEOPOROSIS
     Route: 058
     Dates: start: 20100205

REACTIONS (3)
  - MUSCULAR WEAKNESS [None]
  - FALL [None]
  - PELVIC FRACTURE [None]
